FAERS Safety Report 7403583-2 (Version None)
Quarter: 2011Q2

REPORT INFORMATION
  Report Type: 
  Country: None (occurrence: None)
  Receive Date: 20110408
  Receipt Date: 20110330
  Transmission Date: 20111010
  Serious: Yes (Other)
  Sender: FDA-Public Use
  Company Number: JP-ASTRAZENECA-2010SE40354

PATIENT
  Age: 17703 Day
  Sex: Female
  Weight: 52 kg

DRUGS (8)
  1. NOLVADEX [Suspect]
     Indication: BREAST CANCER
     Route: 048
     Dates: start: 20060809
  2. THYRADIN S [Suspect]
     Indication: HYPOTHYROIDISM
     Route: 048
  3. TEGRETOL [Suspect]
     Indication: EPILEPSY
     Route: 048
  4. FOLIC ACID [Suspect]
     Indication: ANAEMIA
     Route: 048
  5. ZOLADEX [Suspect]
     Indication: BREAST CANCER
     Route: 058
     Dates: start: 20060808, end: 20080917
  6. URALYT [Suspect]
     Indication: HYPERURICAEMIA
     Dosage: UNKNOWN DOSE SIX TIMES A DAY
     Route: 048
  7. METHYCOBAL [Suspect]
     Indication: ANAEMIA
     Route: 048
  8. URINORM [Suspect]
     Indication: HYPERURICAEMIA
     Route: 048

REACTIONS (1)
  - OSTEONECROSIS [None]
